FAERS Safety Report 11468394 (Version 2)
Quarter: 2015Q3

REPORT INFORMATION
  Report Type: Spontaneous
  Country: US (occurrence: US)
  Receive Date: 20150903
  Receipt Date: 20150903
  Transmission Date: 20151125
  Serious: No
  Sender: FDA-Public Use
  Company Number: US-ELI_LILLY_AND_COMPANY-US201108001636

PATIENT
  Age: 71 Year
  Sex: Female
  Weight: 91.61 kg

DRUGS (11)
  1. CYMBALTA [Suspect]
     Active Substance: DULOXETINE HYDROCHLORIDE
     Indication: DEPRESSION
     Dosage: 30 MG, BID
     Dates: end: 201107
  2. METFORMIN [Concomitant]
     Active Substance: METFORMIN HYDROCHLORIDE
  3. SYNTHROID [Concomitant]
     Active Substance: LEVOTHYROXINE SODIUM
  4. DIOVAN [Concomitant]
     Active Substance: VALSARTAN
  5. CYMBALTA [Suspect]
     Active Substance: DULOXETINE HYDROCHLORIDE
     Dosage: 60 MG, BID
     Dates: end: 201107
  6. CYMBALTA [Suspect]
     Active Substance: DULOXETINE HYDROCHLORIDE
     Dosage: 60 MG, UNK
     Route: 048
     Dates: end: 20110808
  7. COREG [Concomitant]
     Active Substance: CARVEDILOL
  8. LEVOTHYROXINE. [Concomitant]
     Active Substance: LEVOTHYROXINE
  9. PROCARDIA [Concomitant]
     Active Substance: NIFEDIPINE
  10. DRUG USED IN DIABETES [Concomitant]
     Active Substance: UNSPECIFIED INGREDIENT
     Indication: DIABETES MELLITUS
  11. INSULIN [Concomitant]
     Active Substance: INSULIN NOS

REACTIONS (6)
  - Diabetes mellitus [Not Recovered/Not Resolved]
  - Glycosylated haemoglobin increased [Unknown]
  - Crying [Not Recovered/Not Resolved]
  - Blood glucose increased [Unknown]
  - Overdose [Recovered/Resolved]
  - Decreased appetite [Not Recovered/Not Resolved]

NARRATIVE: CASE EVENT DATE: 201107
